FAERS Safety Report 6504202-X (Version None)
Quarter: 2009Q4

REPORT INFORMATION
  Report Type: 
  Country: None (occurrence: None)
  Receive Date: 20091217
  Receipt Date: 20091215
  Transmission Date: 20100525
  Serious: Yes (Life-Threatening, Hospitalization)
  Sender: FDA-Public Use
  Company Number: PHHY2008AU28587

PATIENT
  Sex: Male
  Weight: 97.8 kg

DRUGS (5)
  1. CLOZARIL [Suspect]
     Indication: SCHIZOPHRENIA
     Dosage: 225 MG
     Route: 048
     Dates: start: 20080930, end: 20081017
  2. CLOZARIL [Suspect]
     Dosage: 300 MG
     Route: 048
     Dates: start: 20090930
  3. VENLAFAXINE [Concomitant]
     Indication: DEPRESSION
     Dosage: 225 G/DAY
     Route: 048
  4. TERBINAFINE HCL [Concomitant]
     Indication: EXTRAPYRAMIDAL DISORDER
     Dosage: 25 MG, BID
     Route: 048
     Dates: start: 20080101, end: 20080917
  5. QUETIAPINE FUMARATE [Concomitant]
     Dosage: 800 MG

REACTIONS (7)
  - BLOOD CREATINE PHOSPHOKINASE INCREASED [None]
  - LETHARGY [None]
  - MYOCARDITIS [None]
  - PYREXIA [None]
  - RESPIRATORY DISORDER [None]
  - TACHYCARDIA [None]
  - TROPONIN I INCREASED [None]
